FAERS Safety Report 11029669 (Version 1)
Quarter: 2015Q2

REPORT INFORMATION
  Report Type: Spontaneous
  Country: US (occurrence: None)
  Receive Date: 20150413
  Receipt Date: 20150413
  Transmission Date: 20150821
  Serious: Yes (Other)
  Sender: FDA-Public Use
  Company Number: None

PATIENT
  Age: 56 Year
  Sex: Female

DRUGS (3)
  1. PROMETHIUM [Concomitant]
  2. MIRALAX [Suspect]
     Active Substance: POLYETHYLENE GLYCOL 3350
     Indication: COLONOSCOPY
     Dosage: MIX ENTIRE BOTTLE W 64 OZ. GAT AS NEEDED TAKEN BY MOUTH
     Route: 048
     Dates: start: 20150409, end: 20150409
  3. DIVIGEL [Concomitant]
     Active Substance: ESTRADIOL

REACTIONS (3)
  - Vomiting [None]
  - Pruritus [None]
  - Erythema [None]

NARRATIVE: CASE EVENT DATE: 20150409
